FAERS Safety Report 6578778 (Version 7)
Quarter: 2013Q2

REPORT INFORMATION
  Report Type: Spontaneous
  Country: US (occurrence: US)
  Receive Date: 20080312
  Receipt Date: 20130518
  Transmission Date: 20140414
  Serious: Yes (Hospitalization, Other)
  Sender: FDA-Public Use
  Company Number: US-ROCHE-509527

PATIENT
  Age: 36 Year
  Sex: Male
  Weight: 79.4 kg

DRUGS (2)
  1. ACCUTANE [Suspect]
     Indication: ACNE
     Route: 048
     Dates: start: 19980202, end: 19980524
  2. ERGOTAMINE [Concomitant]
     Indication: HEADACHE

REACTIONS (18)
  - Inflammatory bowel disease [Unknown]
  - Crohn^s disease [Unknown]
  - Colitis ulcerative [Unknown]
  - Perirectal abscess [Unknown]
  - Anal fissure [Unknown]
  - Colitis [Unknown]
  - Pseudopolyp [Unknown]
  - Ligament rupture [Unknown]
  - Fall [Unknown]
  - Abdominal pain [Unknown]
  - Rectal haemorrhage [Unknown]
  - Haematochezia [Unknown]
  - Diarrhoea [Unknown]
  - Gastroenteritis [Unknown]
  - Enteritis [Unknown]
  - Anxiety [Unknown]
  - Dry skin [Unknown]
  - Headache [Unknown]
